FAERS Safety Report 8998269 (Version 3)
Quarter: 2013Q1

REPORT INFORMATION
  Report Type: Spontaneous
  Country: GB (occurrence: GB)
  Receive Date: 20130104
  Receipt Date: 20130114
  Transmission Date: 20140127
  Serious: Yes (Death)
  Sender: FDA-Public Use
  Company Number: PHFR2013GB000442

PATIENT
  Age: 49 Year
  Sex: Male

DRUGS (1)
  1. CLOZARIL [Suspect]
     Indication: SCHIZOPHRENIA
     Route: 048
     Dates: start: 20090713

REACTIONS (8)
  - Cardiomyopathy [Fatal]
  - Malaise [Unknown]
  - Local swelling [Unknown]
  - Pain in extremity [Unknown]
  - Weight increased [Unknown]
  - General physical health deterioration [Unknown]
  - Nervous system disorder [Unknown]
  - Musculoskeletal stiffness [Unknown]
